FAERS Safety Report 4300923-8 (Version None)
Quarter: 2004Q1

REPORT INFORMATION
  Report Type: 
  Country: None (occurrence: None)
  Receive Date: 20040219
  Receipt Date: 20040204
  Transmission Date: 20041129
  Serious: Yes (Hospitalization, Other)
  Sender: FDA-Public Use
  Company Number: 235265

PATIENT
  Age: 1 Day
  Sex: Female
  Weight: 2.8 kg

DRUGS (3)
  1. ACTRAPID PENFILL HM (GE) 3 ML (INSULIN HUMAN) SOLUTION FOR INJECTION, [Suspect]
     Indication: DIABETES MELLITUS INSULIN-DEPENDENT
     Dosage: 48 IU, QD, INTRAUTERINE; 24 IU, QD, UNK
     Dates: start: 20021227
  2. ACTRAPID PENFILL HM (GE) 3 ML (INSULIN HUMAN) SOLUTION FOR INJECTION, [Suspect]
     Indication: DIABETES MELLITUS INSULIN-DEPENDENT
     Dosage: 48 IU, QD, INTRAUTERINE; 24 IU, QD, UNK
     Dates: start: 20040204
  3. PROTAPHANE HM PENFILL (INSULIN HUMAN) SUSPENSION FOR INJECTION [Concomitant]

REACTIONS (3)
  - DRUG EXPOSURE DURING PREGNANCY [None]
  - HYPOGLYCAEMIA NEONATAL [None]
  - PREMATURE BABY [None]
